FAERS Safety Report 5200306-2 (Version None)
Quarter: 2007Q1

REPORT INFORMATION
  Report Type: 
  Country: None (occurrence: None)
  Receive Date: 20070105
  Receipt Date: 20061227
  Transmission Date: 20070707
  Serious: Yes (Hospitalization)
  Sender: FDA-Public Use
  Company Number: PL-PFIZER INC-2006143114

PATIENT
  Sex: Male
  Weight: 68.9 kg

DRUGS (8)
  1. SU-011,248 [Suspect]
     Indication: RENAL CELL CARCINOMA STAGE UNSPECIFIED
     Route: 048
     Dates: start: 20061108, end: 20061113
  2. PALIN [Concomitant]
     Route: 048
  3. NO-SPA [Concomitant]
     Route: 048
     Dates: start: 20061108
  4. AMIZEPIN [Concomitant]
     Route: 048
     Dates: start: 20060927
  5. KETONAL [Concomitant]
     Route: 048
     Dates: start: 20061025
  6. BIOXETIN [Concomitant]
     Route: 048
     Dates: start: 20060517
  7. FLUCONAZOLE [Concomitant]
     Route: 048
     Dates: start: 20060802
  8. POLPRAZOL [Concomitant]
     Route: 048

REACTIONS (6)
  - GENITAL INFECTION FUNGAL [None]
  - GENITAL ULCERATION [None]
  - RASH [None]
  - SCROTAL OEDEMA [None]
  - SKIN EXFOLIATION [None]
  - SKIN ULCER [None]
